FAERS Safety Report 18517344 (Version 1)
Quarter: 2020Q4

REPORT INFORMATION
  Report Type: Spontaneous
  Country: PL (occurrence: PL)
  Receive Date: 20201118
  Receipt Date: 20201118
  Transmission Date: 20210114
  Serious: Yes (Other)
  Sender: FDA-Public Use
  Company Number: PL-B.I. PHARMACEUTICALS,INC./RIDGEFIELD-2020-BI-060767

PATIENT
  Age: 58 Year
  Sex: Male

DRUGS (2)
  1. OFEV [Suspect]
     Active Substance: NINTEDANIB
     Indication: LUNG ADENOCARCINOMA STAGE IV
     Route: 065
     Dates: start: 201812, end: 202001
  2. DOCETAKSEL EBEWE [Concomitant]
     Indication: LUNG ADENOCARCINOMA STAGE IV
     Route: 065
     Dates: start: 201812, end: 202001

REACTIONS (3)
  - Malignant neoplasm progression [Unknown]
  - Blood pressure increased [Recovered/Resolved]
  - Transaminases increased [Unknown]
